FAERS Safety Report 15476364 (Version 3)
Quarter: 2018Q4

REPORT INFORMATION
  Report Type: Report from Study
  Country: US (occurrence: US)
  Receive Date: 20181009
  Receipt Date: 20181204
  Transmission Date: 20190205
  Serious: Yes (Other)
  Sender: FDA-Public Use
  Company Number: PHEH2018US040938

PATIENT
  Sex: Male

DRUGS (1)
  1. GLEEVEC [Suspect]
     Active Substance: IMATINIB MESYLATE
     Indication: PRODUCT USED FOR UNKNOWN INDICATION
     Dosage: UNK
     Route: 065

REACTIONS (6)
  - Lung disorder [Unknown]
  - Drug intolerance [Unknown]
  - Pancreatic disorder [Unknown]
  - Diarrhoea [Unknown]
  - Neoplasm recurrence [Recovering/Resolving]
  - Nausea [Unknown]
